FAERS Safety Report 13754727 (Version 2)
Quarter: 2017Q3

REPORT INFORMATION
  Report Type: Spontaneous
  Country: KR (occurrence: KR)
  Receive Date: 20170714
  Receipt Date: 20170825
  Transmission Date: 20171127
  Serious: Yes (Other)
  Sender: FDA-Public Use
  Company Number: KR-009507513-1702KOR002061

PATIENT
  Age: 58 Year
  Sex: Female
  Weight: 47.7 kg

DRUGS (33)
  1. ENDOXAN [Concomitant]
     Active Substance: CYCLOPHOSPHAMIDE
     Indication: BREAST CANCER FEMALE
     Dosage: 828 MG, ONCE (CYCLE 1)
     Route: 042
     Dates: start: 20160510, end: 20160510
  2. DEXAMETHASONE. [Concomitant]
     Active Substance: DEXAMETHASONE
     Indication: PROPHYLAXIS OF NAUSEA AND VOMITING
     Dosage: 0.5 MG, QD
     Route: 048
     Dates: start: 20160511, end: 20160513
  3. AD MYCIN VIAL [Concomitant]
     Indication: BREAST CANCER FEMALE
     Dosage: 82 MG, ONCE (CYCLE 1) (STRENGHT 50 MG/25ML)
     Route: 042
     Dates: start: 20160510, end: 20160510
  4. DEXAMETHASONE. [Concomitant]
     Active Substance: DEXAMETHASONE
     Dosage: 0.5 MG, QD
     Route: 048
     Dates: start: 20160711, end: 20160713
  5. ALOXI [Concomitant]
     Active Substance: PALONOSETRON HYDROCHLORIDE
     Dosage: 0.25 MG, ONCE
     Route: 042
     Dates: start: 20160711, end: 20160711
  6. MACPERAN [Concomitant]
     Active Substance: METOCLOPRAMIDE HYDROCHLORIDE
     Indication: PROPHYLAXIS
     Dosage: 1 TABLET, TID
     Route: 048
     Dates: start: 20160511, end: 20160513
  7. CETRAZOLE [Concomitant]
     Indication: INFECTION PROPHYLAXIS
     Dosage: 2 G, BID
     Route: 042
     Dates: start: 20160517, end: 20160523
  8. PLAKON [Concomitant]
     Dosage: 1.5 MG, ONCE (STRENGHT: 3MG/2ML)
     Route: 030
     Dates: start: 20160621, end: 20160621
  9. AD MYCIN VIAL [Concomitant]
     Dosage: 82 MG, ONCE (CYCLE 2) (STRENGHT 50 MG/25ML)
     Route: 042
     Dates: start: 20160621, end: 20160621
  10. CURAN [Concomitant]
     Active Substance: RANITIDINE HYDROCHLORIDE
     Indication: PROPHYLAXIS
     Dosage: 1 TABLET, BID
     Route: 048
     Dates: start: 20160510, end: 20160515
  11. DURICEF [Concomitant]
     Active Substance: CEFADROXIL
     Indication: INFECTION PROPHYLAXIS
     Dosage: 1 CAPSULE (STRENGTH: 500 MG), BID
     Route: 048
     Dates: start: 20160502, end: 20160511
  12. MUCOSTA [Concomitant]
     Active Substance: REBAMIPIDE
     Indication: PROPHYLAXIS
     Dosage: 1 TABLET (STRENGTH: 100 MG), TID
     Route: 048
     Dates: start: 20160504, end: 20160511
  13. PLAKON [Concomitant]
     Indication: ALLERGY PROPHYLAXIS
     Dosage: 3 MG, ONCE (STRENGHT: 3MG/2ML)
     Route: 030
     Dates: start: 20160510, end: 20160510
  14. EMEND (FOSAPREPITANT DIMEGLUMINE) [Suspect]
     Active Substance: FOSAPREPITANT DIMEGLUMINE
     Dosage: 150 MG, ONCE
     Route: 042
     Dates: start: 20160711, end: 20160711
  15. MACPERAN [Concomitant]
     Active Substance: METOCLOPRAMIDE HYDROCHLORIDE
     Dosage: 1 TABLET, TID
     Route: 048
     Dates: start: 20160711, end: 20160713
  16. ENDOXAN [Concomitant]
     Active Substance: CYCLOPHOSPHAMIDE
     Dosage: 828 MG, ONCE (CYCLE 2)
     Route: 042
     Dates: start: 20160621, end: 20160621
  17. MACPERAN [Concomitant]
     Active Substance: METOCLOPRAMIDE HYDROCHLORIDE
     Dosage: 1 TABLET, TID
     Route: 048
     Dates: start: 20160621, end: 20160623
  18. NEUTROGIN [Concomitant]
     Active Substance: LENOGRASTIM
     Dosage: 250 MICROGRAM, QD
     Route: 042
     Dates: start: 20160701, end: 20160701
  19. ENDOXAN [Concomitant]
     Active Substance: CYCLOPHOSPHAMIDE
     Dosage: 828 MG, ONCE (CYCLE 3)
     Route: 042
     Dates: start: 20160711, end: 20160711
  20. DEXAMETHASONE. [Concomitant]
     Active Substance: DEXAMETHASONE
     Dosage: 0.5 MG, QD
     Route: 048
     Dates: start: 20160621, end: 20160623
  21. DEXAMETHASONE SODIUM PHOSPHATE. [Concomitant]
     Active Substance: DEXAMETHASONE SODIUM PHOSPHATE
     Dosage: 5 MG, ONCE
     Route: 042
     Dates: start: 20160711, end: 20160711
  22. ALOXI [Concomitant]
     Active Substance: PALONOSETRON HYDROCHLORIDE
     Indication: PROPHYLAXIS OF NAUSEA AND VOMITING
     Dosage: 0.25 MG, ONCE
     Route: 042
     Dates: start: 20160510, end: 20160510
  23. ALOXI [Concomitant]
     Active Substance: PALONOSETRON HYDROCHLORIDE
     Dosage: 0.25 MG, ONCE
     Route: 042
     Dates: start: 20160621, end: 20160621
  24. MUCOSTA [Concomitant]
     Active Substance: REBAMIPIDE
     Dosage: 1 TABLET (STRENGTH: 100 MG), TID
     Route: 048
     Dates: start: 20160610
  25. PLAKON [Concomitant]
     Dosage: 1.5 MG, ONCE (STRENGHT: 3MG/2ML)
     Route: 030
     Dates: start: 20160711, end: 20160711
  26. EMEND (FOSAPREPITANT DIMEGLUMINE) [Suspect]
     Active Substance: FOSAPREPITANT DIMEGLUMINE
     Dosage: 150 MG, ONCE
     Route: 042
     Dates: start: 20160621, end: 20160621
  27. AD MYCIN VIAL [Concomitant]
     Dosage: 82 MG, ONCE (CYCLE 3) (STRENGHT 50 MG/25ML)
     Route: 042
     Dates: start: 20160711, end: 20160711
  28. DEXAMETHASONE SODIUM PHOSPHATE. [Concomitant]
     Active Substance: DEXAMETHASONE SODIUM PHOSPHATE
     Indication: PROPHYLAXIS OF NAUSEA AND VOMITING
     Dosage: 5 MG, ONCE
     Route: 042
     Dates: start: 20160510, end: 20160510
  29. DEXAMETHASONE SODIUM PHOSPHATE. [Concomitant]
     Active Substance: DEXAMETHASONE SODIUM PHOSPHATE
     Dosage: 5 MG, ONCE
     Route: 042
     Dates: start: 20160621, end: 20160621
  30. NEUTROGIN [Concomitant]
     Active Substance: LENOGRASTIM
     Dosage: 250 MICROGRAM, QD
     Route: 042
     Dates: start: 20160610, end: 20160610
  31. EMEND (FOSAPREPITANT DIMEGLUMINE) [Suspect]
     Active Substance: FOSAPREPITANT DIMEGLUMINE
     Indication: PROPHYLAXIS OF NAUSEA AND VOMITING
     Dosage: 150 MG, ONCE
     Route: 042
     Dates: start: 20160510, end: 20160510
  32. CURAN [Concomitant]
     Active Substance: RANITIDINE HYDROCHLORIDE
     Dosage: 1 TABLET, BID
     Route: 048
     Dates: start: 20160621, end: 20160621
  33. NEUTROGIN [Concomitant]
     Active Substance: LENOGRASTIM
     Indication: ANAEMIA PROPHYLAXIS
     Dosage: 250 MICROGRAM, QD
     Route: 042
     Dates: start: 20160520, end: 20160523

REACTIONS (2)
  - Neutrophil count decreased [Recovered/Resolved]
  - Stomatitis [Recovered/Resolved]

NARRATIVE: CASE EVENT DATE: 20160520
